FAERS Safety Report 10140050 (Version 2)
Quarter: 2014Q2

REPORT INFORMATION
  Report Type: Report from Study
  Country: AU (occurrence: AU)
  Receive Date: 20140429
  Receipt Date: 20140523
  Transmission Date: 20141212
  Serious: Yes (Hospitalization, Other)
  Sender: FDA-Public Use
  Company Number: PHHY2014AU051073

PATIENT
  Age: 18 Year
  Sex: Male

DRUGS (4)
  1. CLOZARIL [Suspect]
     Indication: SCHIZOPHRENIA
     Dosage: 275 MG, DAILY NOCTE
     Route: 048
     Dates: start: 20120118
  2. CLOZARIL [Suspect]
     Dosage: DOSE DECREASED
     Route: 048
  3. FLUOXETINE [Concomitant]
     Indication: DEPRESSION
     Dosage: 20 MG, MANE
     Route: 048
     Dates: start: 20120118
  4. BENZTROPINE [Concomitant]
     Indication: EXTRAPYRAMIDAL DISORDER
     Dosage: 2 MG, NOCTE
     Route: 048
     Dates: start: 20121031

REACTIONS (15)
  - Upper respiratory tract infection [Unknown]
  - Guillain-Barre syndrome [Recovering/Resolving]
  - Peripheral motor neuropathy [Unknown]
  - Peripheral sensory neuropathy [Unknown]
  - Demyelination [Unknown]
  - Vitamin B12 decreased [Unknown]
  - White blood cell count decreased [Unknown]
  - Vitamin C decreased [Unknown]
  - Weight decreased [Unknown]
  - CSF protein increased [Unknown]
  - Blood albumin increased [Unknown]
  - Blood immunoglobulin G increased [Unknown]
  - Vitamin D decreased [Unknown]
  - Blood iron decreased [Unknown]
  - Vitamin B1 decreased [Unknown]
